FAERS Safety Report 5390755-4 (Version None)
Quarter: 2007Q3

REPORT INFORMATION
  Report Type: 
  Country: None (occurrence: None)
  Receive Date: 20070716
  Receipt Date: 20050906
  Transmission Date: 20080115
  Serious: Yes (Hospitalization)
  Sender: FDA-Public Use
  Company Number: MPS1-10429

PATIENT
  Age: 3 Year
  Sex: Female
  Weight: 12 kg

DRUGS (4)
  1. ALDURAZYME [Suspect]
     Indication: MUCOPOLYSACCHARIDOSIS I
     Dosage: 1000 UNITS ONCE;IV
     Route: 042
     Dates: start: 20050824
  2. ALDURAZYME [Suspect]
     Indication: MUCOPOLYSACCHARIDOSIS I
     Dosage: 1500 UNITS QWK; IV
     Route: 042
     Dates: start: 20031009, end: 20050801
  3. BEN-U-ROL [Concomitant]
  4. NEOSTIL [Concomitant]

REACTIONS (6)
  - ANGIOEDEMA [None]
  - FACE OEDEMA [None]
  - NAUSEA [None]
  - PROSTRATION [None]
  - PYREXIA [None]
  - VOMITING [None]
